FAERS Safety Report 4682283-6 (Version None)
Quarter: 2005Q2

REPORT INFORMATION
  Report Type: 
  Country: None (occurrence: None)
  Receive Date: 20050602
  Receipt Date: 20050602
  Transmission Date: 20051028
  Serious: Yes (Disabling)
  Sender: FDA-Public Use
  Company Number: None

PATIENT
  Sex: Male
  Weight: 90.7194 kg

DRUGS (8)
  1. VIAGRA [Suspect]
     Indication: ERECTILE DYSFUNCTION
     Dosage: 1 TAB EVERY OTHER DAY AS NEEDED
     Dates: start: 19980101, end: 20050501
  2. METFORMIN [Concomitant]
  3. CLONIDINE [Concomitant]
  4. PRAVACHOL [Concomitant]
  5. ENALAPRIL MALEATE [Concomitant]
  6. MULTI-VITAMIN [Concomitant]
  7. VIT C [Concomitant]
  8. BETA CAROTENE [Concomitant]

REACTIONS (4)
  - BLINDNESS [None]
  - CEREBROVASCULAR ACCIDENT [None]
  - EYE DISORDER [None]
  - VISUAL DISTURBANCE [None]
